FAERS Safety Report 17533460 (Version 1)
Quarter: 2020Q1

REPORT INFORMATION
  Report Type: Spontaneous
  Country: US (occurrence: US)
  Receive Date: 20200304
  Receipt Date: 20200304
  Transmission Date: 20200409
  Serious: No
  Sender: FDA-Public Use
  Company Number: None

PATIENT
  Sex: Female

DRUGS (1)
  1. AMBRISENTAN 5MG ACTAVIS PHARMA [Suspect]
     Active Substance: AMBRISENTAN
     Indication: PULMONARY ARTERIAL HYPERTENSION
     Route: 011
     Dates: start: 20200214

REACTIONS (7)
  - Contusion [None]
  - Blister [None]
  - Swelling [None]
  - Nasal congestion [None]
  - Cyanosis [None]
  - Headache [None]
  - Oedema peripheral [None]
